FAERS Safety Report 24439070 (Version 1)
Quarter: 2024Q4

REPORT INFORMATION
  Report Type: Spontaneous
  Country: US (occurrence: US)
  Receive Date: 20241015
  Receipt Date: 20241015
  Transmission Date: 20250114
  Serious: Yes (Other)
  Sender: ABBVIE
  Company Number: US-ABBVIE-5958459

PATIENT
  Sex: Female

DRUGS (1)
  1. RESTASIS [Suspect]
     Active Substance: CYCLOSPORINE
     Indication: Dry eye
     Route: 047
     Dates: end: 20241004

REACTIONS (8)
  - Retinal detachment [Unknown]
  - Dry eye [Unknown]
  - Vision blurred [Unknown]
  - Eye infection [Unknown]
  - Vision blurred [Recovered/Resolved]
  - Excessive eye blinking [Unknown]
  - Corneal dystrophy [Unknown]
  - Multiple allergies [Unknown]
